FAERS Safety Report 18932747 (Version 1)
Quarter: 2021Q1

REPORT INFORMATION
  Report Type: Spontaneous
  Country: US (occurrence: US)
  Receive Date: 20210223
  Receipt Date: 20210223
  Transmission Date: 20210420
  Serious: Yes (Other)
  Sender: FDA-Public Use
  Company Number: None

PATIENT
  Age: 31 Year
  Sex: Male
  Weight: 79.2 kg

DRUGS (4)
  1. ISONIOZID [Concomitant]
     Dates: start: 20210202, end: 20210223
  2. ISONIAZID. [Suspect]
     Active Substance: ISONIAZID
  3. PRIFTIN [Concomitant]
     Active Substance: RIFAPENTINE
     Dates: start: 20210202, end: 20210223
  4. PRIFTIN [Suspect]
     Active Substance: RIFAPENTINE
     Indication: PRODUCT USED FOR UNKNOWN INDICATION
     Dosage: ?          OTHER FREQUENCY:Q1W;?
     Dates: start: 20210202, end: 20210222

REACTIONS (1)
  - Hypersensitivity [None]

NARRATIVE: CASE EVENT DATE: 20210221
